FAERS Safety Report 10858901 (Version 1)
Quarter: 2015Q1

REPORT INFORMATION
  Report Type: Spontaneous
  Country: US (occurrence: US)
  Receive Date: 20150223
  Receipt Date: 20150223
  Transmission Date: 20150721
  Serious: No
  Sender: FDA-Public Use
  Company Number: US-ASTRAZENECA-2015SE14953

PATIENT
  Age: 27712 Day
  Sex: Male
  Weight: 76.7 kg

DRUGS (3)
  1. GLIMEPERIDE [Concomitant]
     Active Substance: GLIMEPIRIDE
  2. METFORMIN HCL [Concomitant]
     Active Substance: METFORMIN HYDROCHLORIDE
  3. BYDUREON [Suspect]
     Active Substance: EXENATIDE
     Indication: TYPE 2 DIABETES MELLITUS
     Route: 058
     Dates: start: 20150202, end: 20150209

REACTIONS (6)
  - Musculoskeletal pain [Unknown]
  - Cognitive disorder [Unknown]
  - Eructation [Unknown]
  - Fatigue [Unknown]
  - Flatulence [Unknown]
  - Oesophageal pain [Unknown]

NARRATIVE: CASE EVENT DATE: 20150202
